FAERS Safety Report 21719881 (Version 1)
Quarter: 2022Q4

REPORT INFORMATION
  Report Type: Other
  Country: US (occurrence: US)
  Receive Date: 20221213
  Receipt Date: 20221213
  Transmission Date: 20230113
  Serious: Yes (Hospitalization)
  Sender: FDA-Public Use
  Company Number: US-HLS-202104382

PATIENT
  Age: 45 Year
  Sex: Female

DRUGS (10)
  1. CLOZAPINE [Suspect]
     Active Substance: CLOZAPINE
     Indication: Product used for unknown indication
     Dosage: UNKNOWN
     Route: 065
  2. VALPROATE [Concomitant]
     Active Substance: VALPROIC ACID
     Dosage: UNKNOWN
     Route: 065
  3. QUETIAPINE [Concomitant]
     Active Substance: QUETIAPINE
     Dosage: UNKNOWN
     Route: 065
  4. TRAZODONE [Concomitant]
     Active Substance: TRAZODONE HYDROCHLORIDE
     Dosage: UNKNOWN
     Route: 065
  5. RISPERIDONE [Concomitant]
     Active Substance: RISPERIDONE
     Dosage: 2MG BID
     Route: 065
  6. RISPERIDONE [Concomitant]
     Active Substance: RISPERIDONE
     Dosage: 4MG BID
     Route: 065
  7. LOXAPINE [Concomitant]
     Active Substance: LOXAPINE
     Dosage: 25MG BID
     Route: 048
  8. LOXAPINE [Concomitant]
     Active Substance: LOXAPINE
     Dosage: 25MG TID
     Route: 048
  9. BENZTROPINE [Concomitant]
     Active Substance: BENZTROPINE
     Dosage: 2MG BID
     Route: 048
  10. DIPHENHYDRAMINE [Concomitant]
     Active Substance: DIPHENHYDRAMINE
     Dosage: 25 MG, BID PRN
     Route: 048

REACTIONS (7)
  - Anxiety [Recovered/Resolved]
  - Hallucination, auditory [Recovered/Resolved]
  - Salivary hypersecretion [Recovered/Resolved]
  - Treatment noncompliance [Recovered/Resolved]
  - Paranoia [Recovered/Resolved]
  - Sedation [Recovered/Resolved]
  - Weight increased [Recovered/Resolved]
